FAERS Safety Report 8926222 (Version 2)
Quarter: 2013Q1

REPORT INFORMATION
  Report Type: Spontaneous
  Country: US (occurrence: US)
  Receive Date: 20121126
  Receipt Date: 20130218
  Transmission Date: 20140127
  Serious: No
  Sender: FDA-Public Use
  Company Number: US-009507513-1211USA007125

PATIENT
  Age: 26 Year
  Sex: Female
  Weight: 66.67 kg

DRUGS (1)
  1. NEXPLANON [Suspect]
     Dosage: 1 ROD
     Route: 059
     Dates: start: 20121026, end: 20121115

REACTIONS (3)
  - Implant site infection [Recovering/Resolving]
  - Implant site erythema [Recovering/Resolving]
  - Implant site reaction [Recovering/Resolving]
